FAERS Safety Report 11967484 (Version 2)
Quarter: 2016Q1

REPORT INFORMATION
  Report Type: Spontaneous
  Country: DE (occurrence: DE)
  Receive Date: 20160127
  Receipt Date: 20160216
  Transmission Date: 20160526
  Serious: Yes (Other)
  Sender: FDA-Public Use
  Company Number: ALCN2016DE000721

PATIENT
  Sex: Female

DRUGS (2)
  1. MONOPROST [Suspect]
     Active Substance: LATANOPROST
     Indication: PRODUCT USED FOR UNKNOWN INDICATION
     Dosage: UNK
     Route: 065
  2. AZARGA [Suspect]
     Active Substance: BRINZOLAMIDE\TIMOLOL MALEATE
     Indication: PRODUCT USED FOR UNKNOWN INDICATION
     Dosage: 1 DF, BID
     Route: 047
     Dates: end: 20160201

REACTIONS (5)
  - Eye haemorrhage [Unknown]
  - Conjunctival bleb [Unknown]
  - Optic nerve injury [Unknown]
  - Intraocular pressure increased [Recovered/Resolved]
  - Drug ineffective [Unknown]
